FAERS Safety Report 7593191-5 (Version None)
Quarter: 2011Q2

REPORT INFORMATION
  Report Type: 
  Country: None (occurrence: None)
  Receive Date: 20110628
  Receipt Date: 20110620
  Transmission Date: 20111010
  Serious: Yes (Death, Hospitalization)
  Sender: FDA-Public Use
  Company Number: 2011CP000118

PATIENT
  Sex: Female

DRUGS (1)
  1. TEMPRA [Suspect]
     Indication: PAIN MANAGEMENT
     Dosage: 3 GM; 1 DAY

REACTIONS (1)
  - HEPATITIS FULMINANT [None]
